FAERS Safety Report 8154523 (Version 11)
Quarter: 2018Q4

REPORT INFORMATION
  Report Type: Spontaneous
  Country: JP (occurrence: JP)
  Receive Date: 20110923
  Receipt Date: 20181121
  Transmission Date: 20190205
  Serious: Yes (Death, Life-Threatening, Hospitalization, Other)
  Sender: FDA-Public Use
  Company Number: PHHY2011JP84121

PATIENT
  Age: 67 Year
  Sex: Male
  Weight: 64 kg

DRUGS (13)
  1. ESTRAMUSTINE [Concomitant]
     Active Substance: ESTRAMUSTINE
     Indication: PROSTATE CANCER
     Route: 065
  2. LEUPLIN [Concomitant]
     Active Substance: LEUPROLIDE ACETATE
     Indication: PROSTATE CANCER
     Dosage: UNK UKN, UNK
     Route: 058
     Dates: start: 200909
  3. TAXOTERE [Concomitant]
     Active Substance: DOCETAXEL
     Indication: PROSTATE CANCER
     Dosage: UNK UKN, UNK
     Route: 041
     Dates: start: 20110510
  4. LIPITOR [Concomitant]
     Active Substance: ATORVASTATIN CALCIUM
     Indication: HYPERLIPIDAEMIA
     Dosage: 5 MG, UNK
     Route: 048
     Dates: start: 20110516
  5. ZOMETA [Suspect]
     Active Substance: ZOLEDRONIC ACID
     Indication: METASTASES TO BONE
     Dosage: 4 MG, UNK
     Route: 041
     Dates: start: 20100726, end: 20110519
  6. DOCETAXEL. [Suspect]
     Active Substance: DOCETAXEL
     Indication: PRODUCT USED FOR UNKNOWN INDICATION
     Dosage: 70 MG/M2
     Route: 065
     Dates: start: 20110510
  7. LHRH [Concomitant]
     Active Substance: GONADORELIN DIACETATE TETRAHYDRATE
     Indication: PROSTATE CANCER
     Route: 065
  8. MICARDIS [Concomitant]
     Active Substance: TELMISARTAN
     Indication: HYPERTENSION
     Dosage: 40 MG, UNK
     Route: 065
     Dates: start: 20110516
  9. DECADRON [Concomitant]
     Active Substance: DEXAMETHASONE
     Indication: PROSTATE CANCER
     Dosage: 1 MG, UNK
     Route: 048
     Dates: start: 20101108, end: 20110627
  10. TRAMAL [Concomitant]
     Active Substance: TRAMADOL
     Indication: PAIN
     Dosage: 75 MG, UNK
     Route: 048
     Dates: start: 20101206, end: 20110520
  11. BICALUTAMIDE. [Concomitant]
     Active Substance: BICALUTAMIDE
     Indication: PROSTATE CANCER
     Route: 065
  12. ADALAT CC [Concomitant]
     Active Substance: NIFEDIPINE
     Indication: HYPERTENSION
     Dosage: 10 MG, UNK
     Route: 048
     Dates: start: 20110516
  13. AMARYL [Concomitant]
     Active Substance: GLIMEPIRIDE
     Indication: DIABETES MELLITUS
     Dosage: 1 MG, UNK
     Route: 048
     Dates: start: 20110516

REACTIONS (33)
  - Osteonecrosis of jaw [Fatal]
  - Respiratory failure [Unknown]
  - White blood cell count increased [Unknown]
  - Haematocrit decreased [Unknown]
  - Red blood cell count decreased [Unknown]
  - Swelling [Fatal]
  - Cellulitis pharyngeal [Fatal]
  - Blood urea increased [Unknown]
  - Heart rate increased [Unknown]
  - Neutrophil count decreased [Unknown]
  - Protein total decreased [Unknown]
  - Metastases to liver [Fatal]
  - Mediastinitis [Unknown]
  - C-reactive protein increased [Unknown]
  - Pancytopenia [Unknown]
  - Pain in jaw [Fatal]
  - Bronchostenosis [Fatal]
  - Cellulitis [Unknown]
  - Blood gases abnormal [Unknown]
  - Tracheal oedema [Fatal]
  - Hepatic enzyme increased [Fatal]
  - Acute kidney injury [Unknown]
  - Renal pain [Unknown]
  - Kidney infection [Recovering/Resolving]
  - Exposed bone in jaw [Fatal]
  - Tenderness [Fatal]
  - Pharyngeal abscess [Fatal]
  - Tracheal stenosis [Fatal]
  - Blood calcium decreased [Unknown]
  - Haemoglobin decreased [Unknown]
  - Dyspnoea [Fatal]
  - Hepatic failure [Fatal]
  - Prostatic specific antigen increased [Unknown]

NARRATIVE: CASE EVENT DATE: 201105
